FAERS Safety Report 6619996-2 (Version None)
Quarter: 2010Q1

REPORT INFORMATION
  Report Type: 
  Country: None (occurrence: None)
  Receive Date: 20100309
  Receipt Date: 20100305
  Transmission Date: 20100710
  Serious: Yes (Death)
  Sender: FDA-Public Use
  Company Number: JP-ASTRAZENECA-2010SE04782

PATIENT
  Age: 25947 Day
  Sex: Male
  Weight: 69 kg

DRUGS (4)
  1. IRESSA [Suspect]
     Indication: NON-SMALL CELL LUNG CANCER
     Route: 048
     Dates: start: 20100127, end: 20100131
  2. VASOLAN [Concomitant]
     Route: 065
  3. MYSLEE [Concomitant]
     Route: 065
  4. RIZE [Concomitant]
     Route: 065

REACTIONS (2)
  - ABDOMINAL PAIN [None]
  - HEPATIC FAILURE [None]
